FAERS Safety Report 8473693-X (Version None)
Quarter: 2012Q2

REPORT INFORMATION
  Report Type: 
  Country: None (occurrence: None)
  Receive Date: 20120628
  Receipt Date: 20111207
  Transmission Date: 20120825
  Serious: Yes (Death)
  Sender: FDA-Public Use
  Company Number: US-MYLANLABS-2011S1018784

PATIENT
  Age: 62 Year
  Sex: Female
  Weight: 97.98 kg

DRUGS (14)
  1. CLOZAPINE [Suspect]
     Route: 048
  2. LOPRESSOR [Concomitant]
  3. PRAVACHOL [Concomitant]
  4. TERAZOSIN HCL [Concomitant]
  5. AMARYL [Concomitant]
  6. COGENTIN [Concomitant]
  7. MECLOFENAMATE SODIUM [Concomitant]
  8. HYDROCHLOROTHIAZIDE [Concomitant]
  9. GEODON [Concomitant]
  10. ZOLOFT [Concomitant]
  11. PROCARDIA /00340701/ [Concomitant]
  12. ASCORBIC ACID [Concomitant]
  13. NORVASC [Concomitant]
  14. TRAZODONE HCL [Concomitant]

REACTIONS (1)
  - DEATH [None]
